FAERS Safety Report 6230332-6 (Version None)
Quarter: 2009Q2

REPORT INFORMATION
  Report Type: 
  Country: None (occurrence: None)
  Receive Date: 20090611
  Receipt Date: 20090602
  Transmission Date: 20091009
  Serious: Yes (Hospitalization, Other)
  Sender: FDA-Public Use
  Company Number: 1000006622

PATIENT
  Age: 54 Year
  Sex: Male

DRUGS (27)
  1. CELEXA [Suspect]
     Indication: DEPRESSION
     Dosage: 40 MG (40 MG, 1 IN 1 D), ORAL; 20 MG (20 MG, 1 IN 1 D),ORAL; 20 MG, 20MG EVERY OTHER DAY, ORAL
     Route: 048
     Dates: start: 20070301, end: 20090423
  2. CELEXA [Suspect]
     Indication: POST-TRAUMATIC STRESS DISORDER
     Dosage: 40 MG (40 MG, 1 IN 1 D), ORAL; 20 MG (20 MG, 1 IN 1 D),ORAL; 20 MG, 20MG EVERY OTHER DAY, ORAL
     Route: 048
     Dates: start: 20070301, end: 20090423
  3. CELEXA [Suspect]
     Indication: SUICIDAL IDEATION
     Dosage: 40 MG (40 MG, 1 IN 1 D), ORAL; 20 MG (20 MG, 1 IN 1 D),ORAL; 20 MG, 20MG EVERY OTHER DAY, ORAL
     Route: 048
     Dates: start: 20070301, end: 20090423
  4. CELEXA [Suspect]
     Indication: DEPRESSION
     Dosage: 40 MG (40 MG, 1 IN 1 D), ORAL; 20 MG (20 MG, 1 IN 1 D),ORAL; 20 MG, 20MG EVERY OTHER DAY, ORAL
     Route: 048
     Dates: start: 20090424, end: 20090430
  5. CELEXA [Suspect]
     Indication: POST-TRAUMATIC STRESS DISORDER
     Dosage: 40 MG (40 MG, 1 IN 1 D), ORAL; 20 MG (20 MG, 1 IN 1 D),ORAL; 20 MG, 20MG EVERY OTHER DAY, ORAL
     Route: 048
     Dates: start: 20090424, end: 20090430
  6. CELEXA [Suspect]
     Indication: SUICIDAL IDEATION
     Dosage: 40 MG (40 MG, 1 IN 1 D), ORAL; 20 MG (20 MG, 1 IN 1 D),ORAL; 20 MG, 20MG EVERY OTHER DAY, ORAL
     Route: 048
     Dates: start: 20090424, end: 20090430
  7. CELEXA [Suspect]
     Indication: DEPRESSION
     Dosage: 40 MG (40 MG, 1 IN 1 D), ORAL; 20 MG (20 MG, 1 IN 1 D),ORAL; 20 MG, 20MG EVERY OTHER DAY, ORAL
     Route: 048
     Dates: start: 20090501, end: 20090507
  8. CELEXA [Suspect]
     Indication: POST-TRAUMATIC STRESS DISORDER
     Dosage: 40 MG (40 MG, 1 IN 1 D), ORAL; 20 MG (20 MG, 1 IN 1 D),ORAL; 20 MG, 20MG EVERY OTHER DAY, ORAL
     Route: 048
     Dates: start: 20090501, end: 20090507
  9. CELEXA [Suspect]
     Indication: SUICIDAL IDEATION
     Dosage: 40 MG (40 MG, 1 IN 1 D), ORAL; 20 MG (20 MG, 1 IN 1 D),ORAL; 20 MG, 20MG EVERY OTHER DAY, ORAL
     Route: 048
     Dates: start: 20090501, end: 20090507
  10. CELEXA [Suspect]
     Indication: DEPRESSION
     Dosage: 10 MG, 10MG EVERY OTHER DAY, ORAL
     Route: 048
     Dates: start: 20090508, end: 20090514
  11. CELEXA [Suspect]
     Indication: POST-TRAUMATIC STRESS DISORDER
     Dosage: 10 MG, 10MG EVERY OTHER DAY, ORAL
     Route: 048
     Dates: start: 20090508, end: 20090514
  12. CELEXA [Suspect]
     Indication: SUICIDAL IDEATION
     Dosage: 10 MG, 10MG EVERY OTHER DAY, ORAL
     Route: 048
     Dates: start: 20090508, end: 20090514
  13. VICODIN [Suspect]
     Indication: PAIN
     Dates: start: 20090220, end: 20090424
  14. DILAUDID [Suspect]
     Indication: PAIN
     Dates: start: 20090220, end: 20090424
  15. DILAUDID [Suspect]
     Indication: POST-THORACOTOMY PAIN SYNDROME
     Dates: start: 20090220, end: 20090424
  16. NEURONTIN [Suspect]
     Indication: PAIN
     Dates: start: 20090220, end: 20090424
  17. NEURONTIN [Suspect]
     Indication: POST-THORACOTOMY PAIN SYNDROME
     Dates: start: 20090220, end: 20090424
  18. METOPROLOL SUCCINATE [Suspect]
     Indication: HYPERTENSION
     Dates: start: 20030101, end: 20081001
  19. TRAMADOL HCL [Suspect]
     Indication: BACK PAIN
     Dates: start: 20081001, end: 20090424
  20. XANAX [Concomitant]
  21. ATIVAN [Concomitant]
  22. CLONAZEPAM [Concomitant]
  23. LISINOPRIL [Concomitant]
  24. ACTOS [Concomitant]
  25. ALLOPURINOL [Concomitant]
  26. PRAVACHOL [Concomitant]
  27. IBUPROFEN [Concomitant]

REACTIONS (12)
  - COMPULSIVE SHOPPING [None]
  - DISORIENTATION [None]
  - DIZZINESS [None]
  - HYPOTENSION [None]
  - IMPRISONMENT [None]
  - LOSS OF CONSCIOUSNESS [None]
  - MENTAL STATUS CHANGES [None]
  - OBSESSIVE-COMPULSIVE DISORDER [None]
  - PNEUMONIA [None]
  - POST-THORACOTOMY PAIN SYNDROME [None]
  - RESPIRATORY TRACT INFECTION FUNGAL [None]
  - SHOPLIFTING [None]
